FAERS Safety Report 9021367 (Version 1)
Quarter: 2013Q1

REPORT INFORMATION
  Report Type: Spontaneous
  Country: US (occurrence: US)
  Receive Date: 20130119
  Receipt Date: 20130119
  Transmission Date: 20140127
  Serious: No
  Sender: FDA-Public Use
  Company Number: US-ALLERGAN-1202529US

PATIENT
  Age: 47 Year
  Sex: Female

DRUGS (3)
  1. BOTOX COSMETIC [Suspect]
     Indication: SKIN WRINKLING
     Dosage: 25 UNITS, SINGLE
     Route: 030
     Dates: start: 20120208, end: 20120208
  2. BOTOX COSMETIC [Suspect]
     Indication: SKIN WRINKLING
  3. JUVEDERM [Suspect]
     Indication: PRODUCT USED FOR UNKNOWN INDICATION
     Dosage: 1.6 ML, SINGLE
     Dates: start: 20120208, end: 20120208

REACTIONS (5)
  - Herpes zoster [Recovering/Resolving]
  - Rash pustular [Recovering/Resolving]
  - Skin irritation [Recovering/Resolving]
  - Erythema [Recovering/Resolving]
  - Facial pain [Recovering/Resolving]
